FAERS Safety Report 6841424-2 (Version None)
Quarter: 2010Q3

REPORT INFORMATION
  Report Type: 
  Country: None (occurrence: None)
  Receive Date: 20100714
  Receipt Date: 20070705
  Transmission Date: 20110219
  Serious: No
  Sender: FDA-Public Use
  Company Number: US-PFIZER INC-2007056647

PATIENT
  Sex: Male
  Weight: 86.363 kg

DRUGS (1)
  1. CHANTIX [Suspect]
     Indication: SMOKING CESSATION THERAPY
     Dates: start: 20070401

REACTIONS (4)
  - ANXIETY [None]
  - DRUG DEPENDENCE [None]
  - THROAT IRRITATION [None]
  - WITHDRAWAL SYNDROME [None]
